FAERS Safety Report 9515861 (Version 1)
Quarter: 2013Q1

REPORT INFORMATION
  Report Type: Spontaneous
  Country: US (occurrence: None)
  Receive Date: 20130305
  Receipt Date: 20130305
  Transmission Date: 20140127
  Serious: Yes (Hospitalization, Other)
  Sender: FDA-Public Use
  Company Number: 163-21880-12113160

PATIENT
  Age: 82 Year
  Sex: Female
  Weight: 65.77 kg

DRUGS (16)
  1. REVLIMID ( LENALIDOMIDE) ( 25 MILLIGRAM, CAPSULES) [Suspect]
     Indication: PLASMA CELL MYELOMA
     Dosage: 25 MG, 21 IN 21 D, PO
     Route: 048
     Dates: start: 20121017
  2. CENTRUM (CENTRUM0 [Concomitant]
  3. LIPITOR (ATORVASTATIN) [Concomitant]
  4. METOPROLOL (METOPROLOL) [Concomitant]
  5. CITALOPRAM (CITALOPRAM) [Concomitant]
  6. PROCHLORPERAZINE (PROCHLORPERAZINE) [Concomitant]
  7. HYDROCHLOROTHIAZIDE (HYDROCHLOROTHIAZIDE) [Concomitant]
  8. OMEPRAZOLE (OMEPRAZOLE) [Concomitant]
  9. HYDROCODONE-ACETAMINOPHEN (REMEDEINE0 [Concomitant]
  10. CYANOCOBALLAMIN (CYANOCOBALAMIN) [Concomitant]
  11. CALCIUM (CALCIUM0 [Concomitant]
  12. MIRALAX [Concomitant]
  13. COLACE (DOCUSATE SODIUM) [Concomitant]
  14. AMBIEN (ZOLPIDEM TARTRATE) [Concomitant]
  15. ASA (ACETYLSALICYLIC ACID) [Concomitant]
  16. DEXAMETHASONE (DEXAMETHASONE) [Concomitant]

REACTIONS (4)
  - Fatigue [None]
  - Tremor [None]
  - Asthenia [None]
  - Blood potassium decreased [None]
